FAERS Safety Report 21181924 (Version 13)
Quarter: 2023Q1

REPORT INFORMATION
  Report Type: Report from Study
  Country: TW (occurrence: None)
  Receive Date: 20220807
  Receipt Date: 20230224
  Transmission Date: 20230418
  Serious: Yes (Death, Hospitalization)
  Sender: FDA-Public Use
  Company Number: TW-ROCHE-3152629

PATIENT
  Age: 68 Year
  Sex: Male

DRUGS (48)
  1. ATEZOLIZUMAB [Suspect]
     Active Substance: ATEZOLIZUMAB
     Indication: Oesophageal cancer metastatic
     Dosage: MOST RECENT DOSE (1200 MG) OF STUDY DRUG PRIOR TO AE: 25/MAY/2022
     Route: 041
     Dates: start: 20220525
  2. TIRAGOLUMAB [Suspect]
     Active Substance: TIRAGOLUMAB
     Indication: Oesophageal cancer metastatic
     Dosage: MOST RECENT DOSE (600 MG) OF STUDY DRUG PRIOR TO AE: 25/MAY/2022
     Route: 042
     Dates: start: 20220525
  3. CISPLATIN [Suspect]
     Active Substance: CISPLATIN
     Indication: Oesophageal cancer metastatic
     Dosage: MOST RECENT DOSE (58.4 MG) OF STUDY DRUG PRIOR TO AE: 25/MAY/2022
     Route: 042
     Dates: start: 20220525
  4. FLUOROURACIL [Suspect]
     Active Substance: FLUOROURACIL
     Indication: Oesophageal cancer metastatic
     Dosage: MOST RECENT DOSE (4380 MG) OF STUDY DRUG PRIOR TO AE: 25/MAY/2022
     Route: 042
     Dates: start: 20220525
  5. ROSUVASTATIN CALCIUM [Concomitant]
     Active Substance: ROSUVASTATIN CALCIUM
     Indication: Dyslipidaemia
     Route: 048
     Dates: start: 2020, end: 20220909
  6. ROSUVASTATIN CALCIUM [Concomitant]
     Active Substance: ROSUVASTATIN CALCIUM
     Route: 048
     Dates: start: 20220730, end: 20220804
  7. ROSUVASTATIN CALCIUM [Concomitant]
     Active Substance: ROSUVASTATIN CALCIUM
     Route: 048
     Dates: start: 20220809, end: 20220810
  8. INDAPAMIDE [Concomitant]
     Active Substance: INDAPAMIDE
     Indication: Hypertension
     Route: 048
     Dates: start: 2020, end: 20220909
  9. INDAPAMIDE [Concomitant]
     Active Substance: INDAPAMIDE
     Route: 048
     Dates: start: 20220810, end: 20220812
  10. CARVEDILOL [Concomitant]
     Active Substance: CARVEDILOL
     Indication: Hypertension
     Route: 048
     Dates: start: 2020, end: 20220909
  11. CARVEDILOL [Concomitant]
     Active Substance: CARVEDILOL
     Route: 048
     Dates: start: 20220730, end: 20220730
  12. CARVEDILOL [Concomitant]
     Active Substance: CARVEDILOL
     Route: 048
     Dates: start: 20220731, end: 20220811
  13. CARVEDILOL [Concomitant]
     Active Substance: CARVEDILOL
     Route: 048
     Dates: start: 20220812, end: 20220817
  14. AMLODIPINE [Concomitant]
     Active Substance: AMLODIPINE BESYLATE
     Indication: Hypertension
     Route: 048
     Dates: start: 2020, end: 20220910
  15. AMLODIPINE [Concomitant]
     Active Substance: AMLODIPINE BESYLATE
     Route: 048
     Dates: start: 20220730, end: 20220802
  16. AMLODIPINE [Concomitant]
     Active Substance: AMLODIPINE BESYLATE
     Route: 048
     Dates: start: 20220731, end: 20220817
  17. OLMESARTAN [Concomitant]
     Active Substance: OLMESARTAN
     Indication: Hypertension
     Route: 048
     Dates: start: 2020, end: 20220909
  18. PREDNISOLONE [Concomitant]
     Active Substance: PREDNISOLONE
     Indication: Chronic kidney disease
     Route: 048
     Dates: start: 20220627, end: 20220710
  19. SULFAMETHOXAZOLE\TRIMETHOPRIM [Concomitant]
     Active Substance: SULFAMETHOXAZOLE\TRIMETHOPRIM
     Dosage: 1 TABLET
     Route: 048
     Dates: start: 20220627, end: 20220728
  20. ROSUVASTATIN [Concomitant]
     Active Substance: ROSUVASTATIN
     Indication: Dyslipidaemia
     Route: 048
     Dates: start: 20220730, end: 20220804
  21. ROSUVASTATIN [Concomitant]
     Active Substance: ROSUVASTATIN
     Route: 048
     Dates: start: 20220809, end: 20220810
  22. ESOMEPRAZOLE [Concomitant]
     Active Substance: ESOMEPRAZOLE
     Route: 042
     Dates: start: 20220731, end: 20220808
  23. HYDRALAZINE [Concomitant]
     Active Substance: HYDRALAZINE HYDROCHLORIDE
     Indication: Hypertension
     Route: 048
     Dates: start: 20220731, end: 20220823
  24. INSULIN NOS [Concomitant]
     Active Substance: INSULIN NOS
     Indication: Hyperglycaemia
     Route: 058
     Dates: start: 20220731, end: 20220801
  25. INSULIN NOS [Concomitant]
     Active Substance: INSULIN NOS
     Route: 058
     Dates: start: 20220805, end: 20220805
  26. INSULIN NOS [Concomitant]
     Active Substance: INSULIN NOS
     Route: 058
     Dates: start: 20220806, end: 20220806
  27. SODIUM CHLORIDE [Concomitant]
     Active Substance: SODIUM CHLORIDE
     Route: 042
     Dates: start: 20220704, end: 20220708
  28. SODIUM CHLORIDE [Concomitant]
     Active Substance: SODIUM CHLORIDE
     Route: 042
     Dates: start: 20220729, end: 20220729
  29. SODIUM CHLORIDE [Concomitant]
     Active Substance: SODIUM CHLORIDE
     Route: 042
     Dates: start: 20220731, end: 20220806
  30. SODIUM CHLORIDE [Concomitant]
     Active Substance: SODIUM CHLORIDE
     Route: 042
     Dates: start: 20220807, end: 20220815
  31. FLURBIPROFEN [Concomitant]
     Active Substance: FLURBIPROFEN
     Dosage: DOSE: 1 OTHER
     Route: 061
     Dates: start: 20220718, end: 20220718
  32. ACETAMINOPHEN\TRAMADOL [Concomitant]
     Active Substance: ACETAMINOPHEN\TRAMADOL
     Dosage: DOSE: 1 TABLET
     Route: 048
     Dates: start: 20200718, end: 20220814
  33. DEXTROSE [Concomitant]
     Active Substance: DEXTROSE
     Dosage: 50%
     Route: 042
     Dates: start: 20220729, end: 20220729
  34. PANTOPRAZOLE [Concomitant]
     Active Substance: PANTOPRAZOLE
     Route: 042
     Dates: start: 20220729, end: 20220731
  35. SENNOSIDES A AND B [Concomitant]
     Active Substance: SENNOSIDES A AND B
     Indication: Constipation
     Route: 048
     Dates: start: 20220731, end: 20220801
  36. SENNOSIDES A AND B [Concomitant]
     Active Substance: SENNOSIDES A AND B
     Route: 048
     Dates: start: 20220811, end: 20220813
  37. SENNOSIDES A AND B [Concomitant]
     Active Substance: SENNOSIDES A AND B
     Route: 048
     Dates: start: 20220815, end: 20220816
  38. SENNOSIDES A AND B [Concomitant]
     Active Substance: SENNOSIDES A AND B
     Dosage: 2 TABLET
     Route: 048
     Dates: start: 20220804, end: 20220809
  39. NYSTATIN [Concomitant]
     Active Substance: NYSTATIN
     Indication: Mouth ulceration
     Route: 058
     Dates: start: 20220807, end: 20220814
  40. NYSTATIN [Concomitant]
     Active Substance: NYSTATIN
     Route: 061
     Dates: start: 20220810, end: 20220814
  41. DIETARY SUPPLEMENT\HERBALS\MILK THISTLE [Concomitant]
     Active Substance: DIETARY SUPPLEMENT\HERBALS\MILK THISTLE
     Route: 048
     Dates: start: 20200808, end: 20220911
  42. LANSOPRAZOLE [Concomitant]
     Active Substance: LANSOPRAZOLE
     Indication: Gastric ulcer
     Route: 048
     Dates: start: 20220809, end: 20220812
  43. DIMETHICONE [Concomitant]
     Active Substance: DIMETHICONE
     Route: 048
     Dates: start: 20220812, end: 20220812
  44. CANAGLIFLOZIN [Concomitant]
     Active Substance: CANAGLIFLOZIN
     Indication: Hyperglycaemia
     Route: 048
     Dates: start: 20220813, end: 20220911
  45. METFORMIN [Concomitant]
     Active Substance: METFORMIN HYDROCHLORIDE
     Indication: Prophylaxis
     Route: 048
     Dates: start: 20220809, end: 20220812
  46. PROPACETAMOL [Concomitant]
     Active Substance: PROPACETAMOL
     Indication: Pyrexia
     Route: 042
     Dates: start: 20220829, end: 20220829
  47. CEFUROXIME [Concomitant]
     Active Substance: CEFUROXIME
     Indication: Pyrexia
     Route: 042
     Dates: start: 20220829, end: 20220831
  48. CEFUROXIME [Concomitant]
     Active Substance: CEFUROXIME
     Route: 042
     Dates: start: 20220831, end: 20220902

REACTIONS (4)
  - Acute kidney injury [Recovered/Resolved]
  - Acute kidney injury [Not Recovered/Not Resolved]
  - Pneumonia [Fatal]
  - Hyperglycaemia [Not Recovered/Not Resolved]

NARRATIVE: CASE EVENT DATE: 20220729
